FAERS Safety Report 5597003-0 (Version None)
Quarter: 2007Q4

REPORT INFORMATION
  Report Type: 
  Country: None (occurrence: None)
  Receive Date: 20071220
  Receipt Date: 20061121
  Transmission Date: 20080405
  Serious: Yes (Life-Threatening)
  Sender: FDA-Public Use
  Company Number: 253717

PATIENT
  Age: 38 Year
  Sex: Male
  Weight: 97.5 kg

DRUGS (3)
  1. NOVOLOG MIX 70.30 FLEXPEN (INSULIN ASPART) SUSPENSION FOR INJECTION, 1 [Suspect]
     Indication: DIABETES MELLITUS
     Dosage: 30 IU, QD, SUBCUTANEOUS
     Route: 058
     Dates: start: 20060101
  2. PROTONIX /0126301/ (PANTROPRAZOLE) [Concomitant]
  3. CIRPO /00697201/ (CIPROFLOXACIN) [Concomitant]

REACTIONS (1)
  - HYPOGLYCAEMIC COMA [None]
